FAERS Safety Report 14148343 (Version 3)
Quarter: 2018Q1

REPORT INFORMATION
  Report Type: Spontaneous
  Country: US (occurrence: US)
  Receive Date: 20171101
  Receipt Date: 20180119
  Transmission Date: 20180508
  Serious: Yes (Other)
  Sender: FDA-Public Use
  Company Number: US-ASTELLAS-2017US038609

PATIENT
  Sex: Male

DRUGS (3)
  1. XTANDI [Suspect]
     Active Substance: ENZALUTAMIDE
     Route: 048
     Dates: start: 201707
  2. XTANDI [Suspect]
     Active Substance: ENZALUTAMIDE
     Indication: PROSTATE CANCER
     Route: 048
     Dates: start: 20170729
  3. XTANDI [Suspect]
     Active Substance: ENZALUTAMIDE
     Route: 048
     Dates: start: 201708

REACTIONS (12)
  - Personality change [Unknown]
  - Allergy to metals [Unknown]
  - Treatment noncompliance [Unknown]
  - Fluid retention [Unknown]
  - Weight increased [Unknown]
  - Skin discolouration [Unknown]
  - Sleep disorder [Unknown]
  - Memory impairment [Unknown]
  - Rash [Unknown]
  - Product size issue [Unknown]
  - Diabetes mellitus [Recovered/Resolved]
  - Peripheral swelling [Not Recovered/Not Resolved]
